FAERS Safety Report 24691477 (Version 2)
Quarter: 2025Q1

REPORT INFORMATION
  Report Type: Spontaneous
  Country: US (occurrence: US)
  Receive Date: 20241203
  Receipt Date: 20250102
  Transmission Date: 20250409
  Serious: No
  Sender: BLUEPRINT MEDICINES
  Company Number: US-Blueprint Medicines Corporation-5481

PATIENT
  Age: 48 Year
  Sex: Male

DRUGS (1)
  1. AYVAKIT [Suspect]
     Active Substance: AVAPRITINIB
     Indication: Mastocytoma
     Dosage: 25MG DAILY
     Dates: start: 20240820

REACTIONS (4)
  - Abdominal pain [Unknown]
  - Brain fog [Unknown]
  - Product dose omission in error [Unknown]
  - Off label use [Unknown]
